FAERS Safety Report 22386961 (Version 1)
Quarter: 2023Q2

REPORT INFORMATION
  Report Type: Report from Study
  Country: CA (occurrence: CA)
  Receive Date: 20230531
  Receipt Date: 20230531
  Transmission Date: 20230721
  Serious: Yes (Hospitalization)
  Sender: FDA-Public Use
  Company Number: CA-002147023-NVSC2022CA236838

PATIENT
  Age: 50 Year
  Sex: Female

DRUGS (5)
  1. HYRIMOZ [Suspect]
     Active Substance: ADALIMUMAB-ADAZ
     Indication: Crohn^s disease
     Dosage: 40 MG
     Route: 058
     Dates: start: 20210923, end: 202203
  2. HYRIMOZ [Suspect]
     Active Substance: ADALIMUMAB-ADAZ
     Dosage: 160 MG (LOADING DOSE)
     Route: 058
     Dates: start: 20220903
  3. HYRIMOZ [Suspect]
     Active Substance: ADALIMUMAB-ADAZ
     Dosage: UNK, LOADING DOSES (RESUMED) THEN ONLY HAD THE TIME TO DO 2 OR 3 EVERY WEEK
     Route: 065
     Dates: start: 202209
  4. HYRIMOZ [Suspect]
     Active Substance: ADALIMUMAB-ADAZ
     Dosage: 80 MG, Q2W
     Route: 058
     Dates: end: 202210
  5. HYRIMOZ [Suspect]
     Active Substance: ADALIMUMAB-ADAZ
     Dosage: 40 MG
     Route: 058

REACTIONS (21)
  - Pain in extremity [Unknown]
  - Eye inflammation [Unknown]
  - Faeces soft [Unknown]
  - Ocular hyperaemia [Unknown]
  - General physical health deterioration [Unknown]
  - Skin fissures [Unknown]
  - Disease recurrence [Unknown]
  - Rhinorrhoea [Not Recovered/Not Resolved]
  - Anxiety [Unknown]
  - Dysphonia [Not Recovered/Not Resolved]
  - Pharyngitis streptococcal [Unknown]
  - Eye infection [Unknown]
  - Productive cough [Unknown]
  - Cough [Recovering/Resolving]
  - Influenza [Unknown]
  - Infection [Unknown]
  - Nasopharyngitis [Not Recovered/Not Resolved]
  - Eye swelling [Unknown]
  - Abdominal pain [Not Recovered/Not Resolved]
  - Sinusitis [Unknown]
  - Sneezing [Unknown]

NARRATIVE: CASE EVENT DATE: 20220101
